FAERS Safety Report 10298910 (Version 3)
Quarter: 2015Q3

REPORT INFORMATION
  Report Type: Spontaneous
  Country: US (occurrence: US)
  Receive Date: 20140711
  Receipt Date: 20150814
  Transmission Date: 20151125
  Serious: No
  Sender: FDA-Public Use
  Company Number: US-GILEAD-2013-0079284

PATIENT
  Age: 71 Year
  Sex: Male

DRUGS (19)
  1. ALPHAGAN P [Concomitant]
     Active Substance: BRIMONIDINE TARTRATE
  2. AVODART [Concomitant]
     Active Substance: DUTASTERIDE
  3. OCUVITE                            /06812401/ [Concomitant]
  4. XARELTO [Concomitant]
     Active Substance: RIVAROXABAN
  5. FOLIC ACID. [Concomitant]
     Active Substance: FOLIC ACID
  6. OXYGEN. [Concomitant]
     Active Substance: OXYGEN
  7. NEXIUM [Concomitant]
     Active Substance: ESOMEPRAZOLE MAGNESIUM
  8. NIASPAN [Concomitant]
     Active Substance: NIACIN
  9. TRAVATAN [Concomitant]
     Active Substance: TRAVOPROST
  10. UROXATRAL [Concomitant]
     Active Substance: ALFUZOSIN HYDROCHLORIDE
  11. LETAIRIS [Suspect]
     Active Substance: AMBRISENTAN
     Indication: PULMONARY HYPERTENSION
     Dosage: 10 MG, QD
     Route: 048
     Dates: start: 20070723
  12. VIAGRA [Concomitant]
     Active Substance: SILDENAFIL CITRATE
  13. TORSEMIDE. [Concomitant]
     Active Substance: TORSEMIDE
  14. CLONAZEPAM. [Concomitant]
     Active Substance: CLONAZEPAM
  15. TESTIM [Concomitant]
     Active Substance: TESTOSTERONE
  16. TYVASO [Concomitant]
     Active Substance: TREPROSTINIL
  17. PRIMIDONE. [Concomitant]
     Active Substance: PRIMIDONE
  18. SPIRIVA [Concomitant]
     Active Substance: TIOTROPIUM BROMIDE MONOHYDRATE
  19. POTASSIUM CHLORIDE. [Concomitant]
     Active Substance: POTASSIUM CHLORIDE

REACTIONS (1)
  - Peripheral artery aneurysm [Not Recovered/Not Resolved]

NARRATIVE: CASE EVENT DATE: 20130723
